FAERS Safety Report 6023047-0 (Version None)
Quarter: 2008Q4

REPORT INFORMATION
  Report Type: 
  Country: None (occurrence: None)
  Receive Date: 20081230
  Receipt Date: 20081015
  Transmission Date: 20090506
  Serious: No
  Sender: FDA-Public Use
  Company Number: US-ABBOTT-08P-163-0481804-00

PATIENT
  Sex: Female
  Weight: 19.068 kg

DRUGS (2)
  1. OMNICEF [Suspect]
     Indication: URINARY TRACT INFECTION
     Route: 048
     Dates: start: 20080922, end: 20081001
  2. FEXOFENADINE [Concomitant]
     Indication: SEASONAL ALLERGY
     Route: 048
     Dates: start: 20030101

REACTIONS (6)
  - ABDOMINAL PAIN UPPER [None]
  - ASTHENIA [None]
  - MOOD SWINGS [None]
  - SPEECH DISORDER [None]
  - TIC [None]
  - WHITE BLOOD CELLS URINE POSITIVE [None]
